FAERS Safety Report 8084278-1 (Version None)
Quarter: 2012Q1

REPORT INFORMATION
  Report Type: 
  Country: None (occurrence: None)
  Receive Date: 20120128
  Receipt Date: 20110307
  Transmission Date: 20120608
  Serious: No
  Sender: FDA-Public Use
  Company Number: US-ABBOTT-11P-163-0709876-00

PATIENT
  Sex: Female
  Weight: 72.64 kg

DRUGS (10)
  1. CYMBALTA [Concomitant]
     Indication: DEPRESSION
  2. FEMCON FE [Concomitant]
     Indication: CONTRACEPTION
  3. ABILIFY [Concomitant]
     Indication: DEPRESSION
  4. PROZAC [Concomitant]
     Indication: DEPRESSION
  5. EXTRA STRENGTH TYLENOL [Concomitant]
     Indication: TENDONITIS
  6. HUMIRA [Suspect]
     Indication: CROHN'S DISEASE
     Dates: start: 20110215, end: 20110215
  7. HUMIRA [Suspect]
     Dates: start: 20110301, end: 20110301
  8. DIVALPROEX SODIUM [Concomitant]
     Indication: MIGRAINE
  9. PENTASA [Concomitant]
     Indication: CROHN'S DISEASE
  10. MULTIVITAMINS WITH IRON [Concomitant]
     Indication: PRODUCT USED FOR UNKNOWN INDICATION

REACTIONS (1)
  - HEADACHE [None]
